FAERS Safety Report 8990128 (Version 2)
Quarter: 2013Q1

REPORT INFORMATION
  Report Type: Spontaneous
  Country: GR (occurrence: GR)
  Receive Date: 20121228
  Receipt Date: 20130214
  Transmission Date: 20140127
  Serious: Yes (Hospitalization)
  Sender: FDA-Public Use
  Company Number: GR-JNJFOC-20121208254

PATIENT
  Age: 15 Year
  Sex: Female
  Weight: 55 kg

DRUGS (20)
  1. DOXORUBICIN [Suspect]
     Indication: BONE SARCOMA
     Route: 042
     Dates: start: 20121024, end: 20121025
  2. DOXORUBICIN [Suspect]
     Indication: BONE SARCOMA
     Route: 042
     Dates: start: 20121024, end: 20121025
  3. IFOSFAMIDE [Suspect]
     Indication: BONE SARCOMA
     Route: 042
     Dates: start: 20121024, end: 20121026
  4. APREPITANT [Suspect]
     Indication: PROPHYLAXIS OF NAUSEA AND VOMITING
     Dosage: CYCLE 1
     Route: 048
     Dates: start: 20120620, end: 20120620
  5. APREPITANT [Suspect]
     Indication: PROPHYLAXIS OF NAUSEA AND VOMITING
     Dosage: CYCLE 1
     Route: 048
     Dates: start: 20120621, end: 20120621
  6. APREPITANT [Suspect]
     Indication: PROPHYLAXIS OF NAUSEA AND VOMITING
     Dosage: CYCLE 2
     Route: 048
     Dates: start: 20121024, end: 20121024
  7. APREPITANT [Suspect]
     Indication: PROPHYLAXIS OF NAUSEA AND VOMITING
     Dosage: CYCLE 2
     Route: 048
     Dates: start: 20121025, end: 20121025
  8. APREPITANT [Suspect]
     Indication: PROPHYLAXIS OF NAUSEA AND VOMITING
     Dosage: CYCLE 1
     Route: 048
     Dates: start: 20120619, end: 20120619
  9. APREPITANT [Suspect]
     Indication: PROPHYLAXIS OF NAUSEA AND VOMITING
     Dosage: CYCLE 3
     Route: 048
     Dates: start: 20121026, end: 20121026
  10. ONDANSETRON [Suspect]
     Indication: PROPHYLAXIS OF NAUSEA AND VOMITING
     Dosage: CYCLE 1
     Route: 042
     Dates: start: 20120620, end: 20120620
  11. ONDANSETRON [Suspect]
     Indication: PROPHYLAXIS OF NAUSEA AND VOMITING
     Route: 042
     Dates: start: 20121027, end: 20121027
  12. ONDANSETRON [Suspect]
     Indication: PROPHYLAXIS OF NAUSEA AND VOMITING
     Route: 042
     Dates: start: 20121026, end: 20121026
  13. ONDANSETRON [Suspect]
     Indication: PROPHYLAXIS OF NAUSEA AND VOMITING
     Route: 042
     Dates: start: 20121025, end: 20121025
  14. ONDANSETRON [Suspect]
     Indication: PROPHYLAXIS OF NAUSEA AND VOMITING
     Dosage: CYCLE 2
     Route: 042
     Dates: start: 20121024, end: 20121027
  15. ONDANSETRON [Suspect]
     Indication: PROPHYLAXIS OF NAUSEA AND VOMITING
     Dosage: CYCLE 1 AT 04:00 PM
     Route: 042
     Dates: start: 20120619, end: 20120619
  16. ONDANSETRON [Suspect]
     Indication: PROPHYLAXIS OF NAUSEA AND VOMITING
     Dosage: CYCLE 1 AT 9:30 AM
     Route: 042
     Dates: start: 20120619, end: 20120619
  17. SULFAMETHOXAZOLE/TRIMETHOPRIM [Concomitant]
     Indication: ANTIFUNGAL PROPHYLAXIS
     Route: 065
     Dates: start: 20120601
  18. MESNA [Concomitant]
     Route: 042
     Dates: start: 20121024, end: 20121024
  19. MESNA [Concomitant]
     Route: 042
     Dates: start: 20121025, end: 20121027
  20. GRANULOCYTE COLONY STIMULATING FACTOR [Concomitant]
     Indication: NEUTROPENIA
     Route: 058
     Dates: start: 20121031

REACTIONS (8)
  - Febrile neutropenia [Recovered/Resolved]
  - Mucosal inflammation [Recovered/Resolved]
  - Hypokalaemia [Recovered/Resolved]
  - Hypomagnesaemia [Recovered/Resolved]
  - Menorrhagia [Recovered/Resolved]
  - Abdominal pain upper [Recovered/Resolved]
  - Thrombocytopenia [Recovered/Resolved]
  - Anaemia [Recovered/Resolved]
